FAERS Safety Report 5477842-7 (Version None)
Quarter: 2007Q4

REPORT INFORMATION
  Report Type: 
  Country: None (occurrence: None)
  Receive Date: 20071004
  Receipt Date: 20070209
  Transmission Date: 20080405
  Serious: No
  Sender: FDA-Public Use
  Company Number: US-BOEHRINGER INGELHEIM PHARMACEUTICALS, INC.-2007-BP-00543BP

PATIENT
  Age: 52 Year
  Sex: Male
  Weight: 114 kg

DRUGS (3)
  1. MICARDIS HCT [Suspect]
     Indication: HYPERTENSION
     Route: 048
     Dates: start: 20061204
  2. HYZAAR [Concomitant]
     Indication: HYPERTENSION
  3. DYNACIRC [Concomitant]
     Dates: start: 20061204

REACTIONS (4)
  - DIZZINESS [None]
  - HYPONATRAEMIA [None]
  - MALAISE [None]
  - MUSCLE SPASMS [None]
